FAERS Safety Report 23515350 (Version 1)
Quarter: 2024Q1

REPORT INFORMATION
  Report Type: Report from Study
  Country: US (occurrence: US)
  Receive Date: 20240213
  Receipt Date: 20240213
  Transmission Date: 20240410
  Serious: Yes (Other)
  Sender: FDA-Public Use
  Company Number: US-JNJFOC-20240153947

PATIENT
  Age: 54 Year

DRUGS (2)
  1. MACITENTAN [Suspect]
     Active Substance: MACITENTAN
     Indication: Pulmonary arterial hypertension
     Route: 048
     Dates: start: 202312
  2. SPIRONOLACTONE [Concomitant]
     Active Substance: SPIRONOLACTONE

REACTIONS (10)
  - Asphyxia [Not Recovered/Not Resolved]
  - Pulmonary congestion [Recovering/Resolving]
  - Chest discomfort [Recovered/Resolved]
  - Nasal congestion [Not Recovered/Not Resolved]
  - Dyspnoea [Not Recovered/Not Resolved]
  - Multiple allergies [Recovering/Resolving]
  - Cough [Recovering/Resolving]
  - Throat irritation [Recovering/Resolving]
  - Nasal pruritus [Recovering/Resolving]
  - Palpitations [Recovered/Resolved]

NARRATIVE: CASE EVENT DATE: 20240101
